FAERS Safety Report 10758494 (Version 1)
Quarter: 2015Q1

REPORT INFORMATION
  Report Type: Spontaneous
  Country: US (occurrence: None)
  Receive Date: 20150202
  Receipt Date: 20150202
  Transmission Date: 20150721
  Serious: Yes (Other)
  Sender: FDA-Public Use
  Company Number: None

PATIENT
  Age: 39 Year
  Sex: Male
  Weight: 82.56 kg

DRUGS (7)
  1. LAMICTAL [Concomitant]
     Active Substance: LAMOTRIGINE
  2. ASACOL [Concomitant]
     Active Substance: MESALAMINE
  3. TYLENOL [Concomitant]
     Active Substance: ACETAMINOPHEN
  4. REMICADE [Suspect]
     Active Substance: INFLIXIMAB
     Indication: COLITIS ULCERATIVE
     Dosage: 7-8 WEEKS
  5. CANASA [Concomitant]
     Active Substance: MESALAMINE
  6. MULTIVITAMIN [Concomitant]
     Active Substance: VITAMINS
  7. CLARITIN [Concomitant]
     Active Substance: LORATADINE

REACTIONS (2)
  - Hepatic enzyme increased [None]
  - Hepatotoxicity [None]

NARRATIVE: CASE EVENT DATE: 20140620
